FAERS Safety Report 19648218 (Version 9)
Quarter: 2022Q4

REPORT INFORMATION
  Report Type: Spontaneous
  Country: US (occurrence: US)
  Receive Date: 20210802
  Receipt Date: 20221111
  Transmission Date: 20230112
  Serious: Yes (Hospitalization, Other)
  Sender: FDA-Public Use
  Company Number: US-SA-SAC20210728001326

PATIENT
  Age: 58 Year
  Sex: Female

DRUGS (3)
  1. FABRAZYME [Suspect]
     Active Substance: AGALSIDASE BETA
     Indication: Fabry^s disease
     Dosage: 10 MG, Q10D
     Route: 042
     Dates: start: 2020
  2. FABRAZYME [Suspect]
     Active Substance: AGALSIDASE BETA
     Indication: Immunodeficiency
     Dosage: 80 MG, Q10D
     Route: 042
     Dates: start: 20200414
  3. FABRAZYME [Suspect]
     Active Substance: AGALSIDASE BETA
     Dosage: 80 MG, Q10D
     Route: 042
     Dates: start: 202107

REACTIONS (9)
  - Renal impairment [Unknown]
  - COVID-19 [Unknown]
  - COVID-19 [Unknown]
  - Fatigue [Unknown]
  - Pain [Unknown]
  - Hypoaesthesia [Unknown]
  - Pain in extremity [Unknown]
  - Inappropriate schedule of product administration [Unknown]
  - Product use in unapproved indication [Unknown]

NARRATIVE: CASE EVENT DATE: 20200101
